FAERS Safety Report 4764792-4 (Version None)
Quarter: 2005Q3

REPORT INFORMATION
  Report Type: 
  Country: None (occurrence: None)
  Receive Date: 20050907
  Receipt Date: 20050830
  Transmission Date: 20060218
  Serious: Yes (Hospitalization, Other)
  Sender: FDA-Public Use
  Company Number: 163-20785-05080348

PATIENT
  Age: 65 Year
  Sex: Male

DRUGS (13)
  1. THALOMID [Suspect]
     Indication: MYELODYSPLASTIC SYNDROME
     Dosage: 50 MG, DAILY, ORAL
     Route: 048
     Dates: start: 20050323, end: 20050630
  2. PREDNISONE [Suspect]
     Indication: MYELODYSPLASTIC SYNDROME
     Dosage: 10 MG, DAILY
  3. ACETYLSALICYLIC ACID SRT [Concomitant]
  4. VITAMIN E [Concomitant]
  5. ERYTHROMYCIN [Concomitant]
  6. SINEMET [Concomitant]
  7. LASIX [Concomitant]
  8. ATROVENT [Concomitant]
  9. ALBUTEROL [Concomitant]
  10. LIPITOR [Concomitant]
  11. ZANTAC [Concomitant]
  12. COUMADIN [Concomitant]
  13. MYLANTA (MYLANTA) [Concomitant]

REACTIONS (11)
  - ANAEMIA [None]
  - BONE MARROW DEPRESSION [None]
  - CHRONIC OBSTRUCTIVE PULMONARY DISEASE [None]
  - HYPERBILIRUBINAEMIA [None]
  - INTERNATIONAL NORMALISED RATIO DECREASED [None]
  - JAUNDICE [None]
  - PLATELET COUNT INCREASED [None]
  - RIGHT VENTRICULAR FAILURE [None]
  - SHIFT TO THE LEFT [None]
  - SPLENOMEGALY [None]
  - THERAPY NON-RESPONDER [None]
